FAERS Safety Report 7048877-8 (Version None)
Quarter: 2010Q4

REPORT INFORMATION
  Report Type: 
  Country: None (occurrence: None)
  Receive Date: 20101012
  Receipt Date: 20101001
  Transmission Date: 20110411
  Serious: No
  Sender: FDA-Public Use
  Company Number: 20107943

PATIENT
  Sex: Male

DRUGS (1)
  1. LIORESAL [Suspect]
     Indication: MUSCLE SPASTICITY
     Dosage: 1105.0 MCG, DAILY, INTRATHECAL

REACTIONS (8)
  - ANXIETY DISORDER [None]
  - COGNITIVE DISORDER [None]
  - DRUG WITHDRAWAL SYNDROME [None]
  - HYPERTONIA [None]
  - MEDICAL DEVICE COMPLICATION [None]
  - PAIN [None]
  - PRURITUS [None]
  - SOMNOLENCE [None]
